FAERS Safety Report 7240956-5 (Version None)
Quarter: 2011Q1

REPORT INFORMATION
  Report Type: 
  Country: None (occurrence: None)
  Receive Date: 20110124
  Receipt Date: 20110119
  Transmission Date: 20110831
  Serious: Yes (Death)
  Sender: FDA-Public Use
  Company Number: PHHY2011BE04490

PATIENT

DRUGS (1)
  1. ALISKIREN [Suspect]
     Dosage: UNK

REACTIONS (1)
  - RESPIRATORY DISORDER [None]
